FAERS Safety Report 9916361 (Version 1)
Quarter: 2014Q1

REPORT INFORMATION
  Report Type: Spontaneous
  Country: NL (occurrence: None)
  Receive Date: 20140219
  Receipt Date: 20140219
  Transmission Date: 20141002
  Serious: Yes (Hospitalization)
  Sender: FDA-Public Use
  Company Number: AUR-APL-2014-01864

PATIENT
  Age: 17 Year
  Sex: Female

DRUGS (2)
  1. RISPERIDONE [Suspect]
     Indication: AGITATION
     Dosage: 1 MG (1 MG, 2 IN 2 D), ORAL
     Route: 048
  2. HALOPERIDOL [Suspect]
     Indication: AGITATION
     Dosage: 0.6 MG (0.2 MG, 3 IN 1 D), ORAL
     Route: 048

REACTIONS (5)
  - Sedation [None]
  - Tremor [None]
  - Tremor [None]
  - Parkinsonism [None]
  - Drug ineffective [None]
